FAERS Safety Report 7328629-1 (Version None)
Quarter: 2011Q1

REPORT INFORMATION
  Report Type: 
  Country: None (occurrence: None)
  Receive Date: 20110222
  Receipt Date: 20110211
  Transmission Date: 20110831
  Serious: Yes (Hospitalization)
  Sender: FDA-Public Use
  Company Number: 2011SP006455

PATIENT
  Age: 24 Year
  Sex: Female
  Weight: 67 kg

DRUGS (2)
  1. NUVARING [Suspect]
     Indication: PRODUCT USED FOR UNKNOWN INDICATION
     Dosage: VAG
     Route: 067
  2. MARIJUANA [Concomitant]

REACTIONS (6)
  - NECK PAIN [None]
  - PLEURISY [None]
  - ATRIAL SEPTAL DEFECT [None]
  - PAIN IN JAW [None]
  - PULMONARY EMBOLISM [None]
  - VENTILATION PERFUSION MISMATCH [None]
